FAERS Safety Report 12760453 (Version 2)
Quarter: 2018Q2

REPORT INFORMATION
  Report Type: Spontaneous
  Country: US (occurrence: US)
  Receive Date: 20160919
  Receipt Date: 20180521
  Transmission Date: 20180711
  Serious: Yes (Other)
  Sender: FDA-Public Use
  Company Number: US-PFIZER INC-2016434021

PATIENT
  Age: 76 Year
  Sex: Female
  Weight: 92.99 kg

DRUGS (1)
  1. PRISTIQ EXTENDED-RELEASE [Suspect]
     Active Substance: DESVENLAFAXINE SUCCINATE
     Indication: DEPRESSION
     Dosage: 50 MG, 1X/DAY
     Route: 048

REACTIONS (9)
  - Lung neoplasm malignant [Not Recovered/Not Resolved]
  - Body height decreased [Unknown]
  - Hypoacusis [Unknown]
  - Muscle spasms [Unknown]
  - Intentional product use issue [Unknown]
  - Intentional product misuse [Unknown]
  - Malaise [Unknown]
  - Visual impairment [Unknown]
  - Negative thoughts [Unknown]

NARRATIVE: CASE EVENT DATE: 2018
